FAERS Safety Report 18217826 (Version 1)
Quarter: 2020Q3

REPORT INFORMATION
  Report Type: Spontaneous
  Country: US (occurrence: US)
  Receive Date: 20200901
  Receipt Date: 20200901
  Transmission Date: 20201103
  Serious: No
  Sender: FDA-Public Use
  Company Number: US-009507513-2008USA012409

PATIENT
  Age: 87 Year
  Sex: Male
  Weight: 78 kg

DRUGS (5)
  1. TYLENOL [Concomitant]
     Active Substance: ACETAMINOPHEN
  2. ATORVASTATIN [Concomitant]
     Active Substance: ATORVASTATIN
  3. INTEGRILIN [Suspect]
     Active Substance: EPTIFIBATIDE
     Indication: MYOCARDIAL INFARCTION
     Dosage: STRENGTH: 0.75 MG/ML
     Route: 042
     Dates: start: 20200823, end: 20200824
  4. AMIODARONE [Concomitant]
     Active Substance: AMIODARONE
  5. ASPIRIN. [Concomitant]
     Active Substance: ASPIRIN

REACTIONS (2)
  - No adverse event [Unknown]
  - Administration site extravasation [Unknown]

NARRATIVE: CASE EVENT DATE: 202008
